FAERS Safety Report 8842441 (Version 1)
Quarter: 2012Q4

REPORT INFORMATION
  Report Type: Report from Study
  Country: US (occurrence: US)
  Receive Date: 20121016
  Receipt Date: 20121016
  Transmission Date: 20130627
  Serious: Yes (Other)
  Sender: FDA-Public Use
  Company Number: US-ABBOTT-12P-163-0992897-00

PATIENT
  Age: 33 Year
  Sex: Female

DRUGS (4)
  1. HUMIRA [Suspect]
     Indication: PSORIASIS
     Dates: start: 201201, end: 201202
  2. EFFEXOR [Concomitant]
     Indication: HOT FLUSH
  3. PROPRANOLOL [Concomitant]
     Indication: MIGRAINE
  4. SUMATRIPTAN [Concomitant]
     Indication: MIGRAINE

REACTIONS (8)
  - Ovarian cyst [Unknown]
  - Sinus disorder [Unknown]
  - Sinus congestion [Unknown]
  - Upper-airway cough syndrome [Unknown]
  - Oropharyngeal pain [Unknown]
  - Cough [Unknown]
  - Throat irritation [Unknown]
  - Sinus headache [Unknown]
